FAERS Safety Report 4943211-9 (Version None)
Quarter: 2006Q1

REPORT INFORMATION
  Report Type: 
  Country: None (occurrence: None)
  Receive Date: 20060314
  Receipt Date: 20060309
  Transmission Date: 20060701
  Serious: Yes (Other)
  Sender: FDA-Public Use
  Company Number: CA-MERCK-0603CAN00056

PATIENT
  Sex: Female

DRUGS (6)
  1. ZOCOR [Suspect]
     Route: 048
     Dates: start: 20020101
  2. ZOCOR [Suspect]
     Route: 048
  3. ZOCOR [Suspect]
     Route: 048
  4. ATENOLOL [Concomitant]
     Route: 065
  5. RAMIPRIL [Concomitant]
     Route: 065
  6. ASPIRIN [Concomitant]
     Route: 065

REACTIONS (5)
  - DIZZINESS [None]
  - HYPOTENSION [None]
  - MUSCLE FATIGUE [None]
  - MYALGIA [None]
  - MYOCARDIAL INFARCTION [None]
